FAERS Safety Report 24121129 (Version 1)
Quarter: 2024Q3

REPORT INFORMATION
  Report Type: Spontaneous
  Country: US (occurrence: US)
  Receive Date: 20240722
  Receipt Date: 20240722
  Transmission Date: 20241017
  Serious: Yes (Other)
  Sender: BAUSCH AND LOMB
  Company Number: US-CHEPLA-2024008887

PATIENT
  Age: 4 Year
  Sex: Female

DRUGS (17)
  1. TRETINOIN [Suspect]
     Active Substance: TRETINOIN
     Indication: Acute promyelocytic leukaemia
     Dosage: PATIENT RECEIVED 3 DOSES OF ATRA
     Route: 065
  2. TRETINOIN [Suspect]
     Active Substance: TRETINOIN
     Dosage: IDA-FLAG (IDARUBICIN, FLUDARABINE, CYTARABINE, AND G-CSF) CHEMOTHERAPY WITH THE ADDITION OF ATRA
     Route: 065
  3. TRETINOIN [Suspect]
     Active Substance: TRETINOIN
     Dosage: SHE THEN WENT ON TO RECEIVE HIGH DOSES OF CYTARABINE AND ETOPOSIDE PLUS ATRA
     Route: 065
  4. HYDROCORTISONE [Suspect]
     Active Substance: HYDROCORTISONE\HYDROCORTISONE ACETATE
     Indication: Acute promyelocytic leukaemia
     Route: 065
  5. CYTARABINE [Suspect]
     Active Substance: CYTARABINE
     Indication: Acute promyelocytic leukaemia
     Route: 065
  6. CYTARABINE [Suspect]
     Active Substance: CYTARABINE
     Route: 065
  7. CYTARABINE [Suspect]
     Active Substance: CYTARABINE
     Route: 065
  8. IDARUBICIN [Suspect]
     Active Substance: IDARUBICIN
     Indication: Acute promyelocytic leukaemia
     Route: 065
  9. FLUDARABINE [Suspect]
     Active Substance: FLUDARABINE PHOSPHATE
     Indication: Acute promyelocytic leukaemia
     Route: 065
  10. FLUDARABINE [Suspect]
     Active Substance: FLUDARABINE PHOSPHATE
     Route: 065
  11. GRANULOCYTE COLONY-STIMULATING FACTOR NOS [Suspect]
     Active Substance: GRANULOCYTE COLONY-STIMULATING FACTOR NOS
     Indication: Acute promyelocytic leukaemia
     Route: 065
  12. ETOPOSIDE [Suspect]
     Active Substance: ETOPOSIDE
     Indication: Acute promyelocytic leukaemia
     Route: 065
  13. DAUNORUBICIN [Suspect]
     Active Substance: DAUNORUBICIN
     Indication: Acute promyelocytic leukaemia
     Route: 065
  14. DEXRAZOXANE [Suspect]
     Active Substance: DEXRAZOXANE
     Indication: Acute promyelocytic leukaemia
     Route: 065
  15. METHOTREXATE [Suspect]
     Active Substance: METHOTREXATE
     Indication: Acute promyelocytic leukaemia
     Route: 037
  16. BUSULFAN [Suspect]
     Active Substance: BUSULFAN
     Indication: Acute promyelocytic leukaemia
     Route: 065
  17. CLOFARABINE [Suspect]
     Active Substance: CLOFARABINE
     Indication: Acute promyelocytic leukaemia
     Route: 065

REACTIONS (5)
  - Human herpesvirus 6 viraemia [Unknown]
  - Mucosal inflammation [Unknown]
  - Clostridium difficile infection [Unknown]
  - Pyrexia [Unknown]
  - Coagulopathy [Unknown]
